FAERS Safety Report 11532796 (Version 1)
Quarter: 2015Q3

REPORT INFORMATION
  Report Type: Spontaneous
  Country: KR (occurrence: KR)
  Receive Date: 20150921
  Receipt Date: 20150921
  Transmission Date: 20151125
  Serious: Yes (Hospitalization)
  Sender: FDA-Public Use
  Company Number: KR-ABBVIE-15K-090-1463345-00

PATIENT
  Age: 73 Year
  Sex: Female
  Weight: 50.7 kg

DRUGS (35)
  1. MOTILITONE [Concomitant]
     Active Substance: HERBALS
     Indication: PROPHYLAXIS
     Route: 048
     Dates: start: 20150303
  2. TERILAX [Concomitant]
     Indication: MUSCLE RELAXANT THERAPY
     Route: 048
     Dates: start: 20150707, end: 20150721
  3. POLYBUTINE [Concomitant]
     Indication: DYSPEPSIA
  4. HUMALOG [Concomitant]
     Active Substance: INSULIN LISPRO
     Route: 058
     Dates: start: 20150722, end: 20150731
  5. CEFAZED [Concomitant]
     Indication: INFECTION PROPHYLAXIS
     Route: 042
     Dates: start: 20150723, end: 20150729
  6. PARAMACET [Concomitant]
     Active Substance: ACETAMINOPHEN\TRAMADOL
     Indication: RHEUMATOID ARTHRITIS
     Dosage: TID
     Route: 048
     Dates: start: 20150625
  7. LIPITOR [Concomitant]
     Active Substance: ATORVASTATIN CALCIUM
     Indication: HYPERLIPIDAEMIA
     Route: 048
     Dates: start: 20150827
  8. ALBIS [Concomitant]
     Active Substance: BISMUTH SUBCITRATE\RANITIDINE HYDROCHLORIDE\SUCRALFATE
     Indication: GASTRITIS PROPHYLAXIS
     Route: 048
     Dates: start: 20150706, end: 20150707
  9. HUMIRA [Suspect]
     Active Substance: ADALIMUMAB
     Indication: RHEUMATOID ARTHRITIS
     Route: 058
     Dates: start: 20140916
  10. DICAMAX-D [Concomitant]
     Indication: OSTEOPOROSIS
     Route: 048
     Dates: start: 20130826
  11. ULTRACET SEMI [Concomitant]
     Indication: RHEUMATOID ARTHRITIS
     Route: 048
     Dates: start: 20150625, end: 20150721
  12. MOTILITONE [Concomitant]
     Active Substance: HERBALS
     Indication: GASTRIC DISORDER
  13. ACTONEL EC [Concomitant]
     Indication: OSTEOPOROSIS
     Route: 048
     Dates: start: 20150204
  14. POLYBUTINE [Concomitant]
     Indication: PROPHYLAXIS
     Route: 048
     Dates: start: 20150715, end: 20150721
  15. BEARCEF [Concomitant]
     Indication: NEUROSURGERY
  16. MYPOL [Concomitant]
     Indication: ANALGESIC THERAPY
     Route: 048
     Dates: start: 20150801, end: 20150811
  17. FOLIC ACID. [Concomitant]
     Active Substance: FOLIC ACID
     Indication: VITAMIN SUPPLEMENTATION
     Route: 048
     Dates: start: 20110106
  18. MOBIC [Concomitant]
     Active Substance: MELOXICAM
     Indication: RHEUMATOID ARTHRITIS
     Route: 048
     Dates: start: 20150303
  19. METHYLON [Concomitant]
     Active Substance: METHYLPREDNISOLONE
     Indication: RHEUMATOID ARTHRITIS
     Route: 048
     Dates: start: 20150303
  20. AMLOPINE [Concomitant]
     Indication: HYPERTENSION
     Route: 048
     Dates: start: 20150722, end: 20150801
  21. HUMALOG [Concomitant]
     Active Substance: INSULIN LISPRO
     Indication: TYPE 2 DIABETES MELLITUS
     Route: 058
     Dates: start: 20150710, end: 20150710
  22. AMARYL [Concomitant]
     Active Substance: GLIMEPIRIDE
     Indication: TYPE 2 DIABETES MELLITUS
     Route: 048
     Dates: start: 20150801, end: 20150801
  23. BEARSE [Concomitant]
     Indication: DYSPEPSIA
     Route: 048
     Dates: start: 20150801, end: 20150811
  24. LANTUS [Concomitant]
     Active Substance: INSULIN GLARGINE
     Indication: TYPE 2 DIABETES MELLITUS
     Dosage: 100UNIT/10ML
     Route: 058
  25. GLIPTIDE [Concomitant]
     Indication: GASTRITIS PROPHYLAXIS
     Route: 048
     Dates: start: 20150106
  26. ALBIS [Concomitant]
     Active Substance: BISMUTH SUBCITRATE\RANITIDINE HYDROCHLORIDE\SUCRALFATE
     Route: 048
     Dates: start: 20150715, end: 20150721
  27. H2 [Concomitant]
     Indication: PROPHYLAXIS AGAINST GASTROINTESTINAL ULCER
     Route: 042
     Dates: start: 20150724, end: 20150726
  28. NORZYME [Concomitant]
     Indication: DYSPEPSIA
     Route: 048
     Dates: start: 20150724, end: 20150801
  29. CEFAZED [Concomitant]
     Indication: NEUROSURGERY
     Route: 042
     Dates: start: 20150710, end: 20150710
  30. ULTRACET [Concomitant]
     Active Substance: ACETAMINOPHEN\TRAMADOL HYDROCHLORIDE
     Indication: RHEUMATOID ARTHRITIS
     Route: 048
     Dates: start: 20150722, end: 20150730
  31. METHOTREXATE [Concomitant]
     Active Substance: METHOTREXATE
     Indication: RHEUMATOID ARTHRITIS
     Route: 048
     Dates: start: 20150625
  32. OPALMON [Concomitant]
     Active Substance: LIMAPROST
     Indication: HYPOAESTHESIA
     Route: 048
     Dates: start: 20150625
  33. ULTRACET SEMI [Concomitant]
     Route: 048
     Dates: start: 20150731
  34. BERASIL [Concomitant]
     Active Substance: BERAPROST
     Indication: DIABETIC VASCULAR DISORDER
     Route: 048
     Dates: start: 20150701, end: 20150705
  35. BEARCEF [Concomitant]
     Indication: INFECTION PROPHYLAXIS
     Route: 048
     Dates: start: 20150711, end: 20150714

REACTIONS (4)
  - Intervertebral disc protrusion [Unknown]
  - Spinal cord compression [Unknown]
  - Ligament disorder [Unknown]
  - Lumbar spinal stenosis [Recovered/Resolved]

NARRATIVE: CASE EVENT DATE: 20150701
